FAERS Safety Report 9700050 (Version 1)
Quarter: 2013Q4

REPORT INFORMATION
  Report Type: Spontaneous
  Country: CN (occurrence: CN)
  Receive Date: 20131121
  Receipt Date: 20131121
  Transmission Date: 20140711
  Serious: Yes (Other)
  Sender: FDA-Public Use
  Company Number: CN-ASTRAZENECA-2013SE84343

PATIENT
  Sex: Female

DRUGS (3)
  1. ZOLADEX [Suspect]
     Indication: BREAST CANCER
     Route: 058
     Dates: start: 2010
  2. XELODA [Concomitant]
     Indication: BREAST CANCER
     Dates: start: 2009
  3. TAMOXIFEN [Concomitant]
     Indication: BREAST CANCER
     Dates: start: 2009

REACTIONS (2)
  - Metastases to central nervous system [Not Recovered/Not Resolved]
  - Psychiatric symptom [Unknown]
